FAERS Safety Report 5144126-6 (Version None)
Quarter: 2006Q4

REPORT INFORMATION
  Report Type: 
  Country: None (occurrence: None)
  Receive Date: 20061106
  Receipt Date: 20061025
  Transmission Date: 20070319
  Serious: Yes (Hospitalization, Other)
  Sender: FDA-Public Use
  Company Number: PHBS2006BR16812

PATIENT
  Age: 33 Year
  Sex: Male
  Weight: 75 kg

DRUGS (3)
  1. TEGRETOL [Suspect]
     Indication: EPILEPSY
     Dosage: 200 MG/DAY
     Route: 048
     Dates: start: 19860101, end: 20061020
  2. TEGRETOL [Suspect]
     Dosage: 8000 MG, ONCE/SINGLE
     Route: 048
     Dates: start: 20061020, end: 20061020
  3. TOPAMAX [Concomitant]
     Indication: EPILEPSY
     Dosage: 100 MG, QD
     Route: 048
     Dates: end: 20061020

REACTIONS (16)
  - ACCOMMODATION DISORDER [None]
  - BALANCE DISORDER [None]
  - COMA [None]
  - CONVULSION [None]
  - DIPLOPIA [None]
  - FACE OEDEMA [None]
  - FALL [None]
  - HAEMATOMA [None]
  - HAEMORRHAGE [None]
  - INNER EAR DISORDER [None]
  - INTENTIONAL OVERDOSE [None]
  - NERVOUSNESS [None]
  - SKIN INJURY [None]
  - SUICIDE ATTEMPT [None]
  - SUTURE INSERTION [None]
  - VISION BLURRED [None]
